FAERS Safety Report 7979756-7 (Version None)
Quarter: 2011Q4

REPORT INFORMATION
  Report Type: 
  Country: None (occurrence: None)
  Receive Date: 20111214
  Receipt Date: 20111129
  Transmission Date: 20120403
  Serious: Yes (Hospitalization)
  Sender: FDA-Public Use
  Company Number: US-JUTA GMBH-2011-21245

PATIENT
  Age: 3 Year
  Sex: Male

DRUGS (1)
  1. FLUOXETINE HCL [Suspect]
     Indication: ACCIDENTAL EXPOSURE
     Dosage: TOTAL 12 TABS 12.6MG/KG
     Route: 048

REACTIONS (13)
  - HAEMODYNAMIC INSTABILITY [None]
  - MYDRIASIS [None]
  - HYPOTENSION [None]
  - APHASIA [None]
  - BRAIN OEDEMA [None]
  - INAPPROPRIATE ANTIDIURETIC HORMONE SECRETION [None]
  - ACCIDENTAL EXPOSURE [None]
  - HYPERHIDROSIS [None]
  - TACHYCARDIA [None]
  - MUSCLE RIGIDITY [None]
  - CONVULSION [None]
  - TREMOR [None]
  - HALLUCINATION [None]
